FAERS Safety Report 7211172-8 (Version None)
Quarter: 2011Q1

REPORT INFORMATION
  Report Type: 
  Country: None (occurrence: None)
  Receive Date: 20110105
  Receipt Date: 20101231
  Transmission Date: 20110831
  Serious: Yes (Hospitalization)
  Sender: FDA-Public Use
  Company Number: IT-MERCK-1012ITA00194

PATIENT
  Age: 44 Year
  Sex: Female

DRUGS (3)
  1. SIMVASTATIN [Concomitant]
     Route: 048
     Dates: start: 20100623
  2. JANUMET [Suspect]
     Route: 048
     Dates: start: 20090608, end: 20101222
  3. METFORMIN HYDROCHLORIDE [Concomitant]
     Route: 048
     Dates: start: 20030414

REACTIONS (1)
  - SARCOMA [None]
